FAERS Safety Report 13506015 (Version 1)
Quarter: 2017Q2

REPORT INFORMATION
  Report Type: Spontaneous
  Country: US (occurrence: US)
  Receive Date: 20170502
  Receipt Date: 20170502
  Transmission Date: 20170830
  Serious: Yes (Other)
  Sender: FDA-Public Use
  Company Number: US-ROCHE-1191126

PATIENT
  Sex: Male

DRUGS (1)
  1. AVASTIN [Suspect]
     Active Substance: BEVACIZUMAB
     Indication: PRODUCT USED FOR UNKNOWN INDICATION
     Dosage: AVASTIN VIALS 400MG/16ML.
     Route: 050

REACTIONS (3)
  - Product quality issue [Unknown]
  - Off label use [Unknown]
  - Eye inflammation [Recovered/Resolved]
